FAERS Safety Report 9855508 (Version 1)
Quarter: 2013Q4

REPORT INFORMATION
  Report Type: Spontaneous
  Country: US (occurrence: None)
  Receive Date: 20131226
  Receipt Date: 20131226
  Transmission Date: 20140711
  Serious: Yes (Hospitalization)
  Sender: FDA-Public Use
  Company Number: PHEH2012US021249

PATIENT
  Sex: Female
  Weight: 66 kg

DRUGS (1)
  1. SANDOSTATIN LAR DEPOT (OCTREOTIDE WITH POLY(D L-LACTIDE-CO-GLYCOLIDE)) UNKNOWN [Suspect]
     Indication: CARCINOID SYNDROME
     Dosage: 30 MG, ONCE IN A MONTH

REACTIONS (9)
  - Metastases to liver [None]
  - Metastases to bone [None]
  - Diarrhoea [None]
  - Cachexia [None]
  - Pain in extremity [None]
  - Temperature intolerance [None]
  - Malaise [None]
  - Asthenia [None]
  - Abdominal distension [None]
